FAERS Safety Report 18325918 (Version 2)
Quarter: 2020Q4

REPORT INFORMATION
  Report Type: Spontaneous
  Country: US (occurrence: US)
  Receive Date: 20200929
  Receipt Date: 20201002
  Transmission Date: 20210113
  Serious: Yes (Hospitalization)
  Sender: FDA-Public Use
  Company Number: US-PFIZER INC-2020373574

PATIENT
  Age: 60 Year
  Sex: Male

DRUGS (1)
  1. XELJANZ XR [Suspect]
     Active Substance: TOFACITINIB CITRATE
     Indication: COLITIS ULCERATIVE
     Dosage: 22 MG, 1X/DAY
     Route: 048
     Dates: start: 202009

REACTIONS (7)
  - Insomnia [Unknown]
  - Drug ineffective [Unknown]
  - Pyrexia [Unknown]
  - Dry mouth [Unknown]
  - Stomatitis [Unknown]
  - Pain [Unknown]
  - Diarrhoea [Unknown]
